FAERS Safety Report 14187406 (Version 1)
Quarter: 2017Q4

REPORT INFORMATION
  Report Type: Spontaneous
  Country: US (occurrence: US)
  Receive Date: 20171113
  Receipt Date: 20171113
  Transmission Date: 20180321
  Serious: Yes (Hospitalization, Disabling, Other)
  Sender: FDA-Public Use
  Company Number: None

PATIENT
  Age: 28 Year
  Sex: Female
  Weight: 54 kg

DRUGS (2)
  1. HYDROCORTISONE VALERATE. [Suspect]
     Active Substance: HYDROCORTISONE VALERATE
     Indication: ECZEMA
     Dosage: QUANTITY:1 SMALL AMOUNT;?
     Route: 061
     Dates: start: 20140116, end: 20150817
  2. TRIAMCINOLONE ACETONIDE. [Suspect]
     Active Substance: TRIAMCINOLONE ACETONIDE
     Indication: ECZEMA
     Dosage: ?          OTHER STRENGTH:1 LB;?
     Route: 061
     Dates: start: 20150801, end: 20171001

REACTIONS (6)
  - Thermal burn [None]
  - Drug dependence [None]
  - Erythema [None]
  - Pruritus [None]
  - Dermatitis [None]
  - Laceration [None]

NARRATIVE: CASE EVENT DATE: 20150801
